FAERS Safety Report 8314658-8 (Version None)
Quarter: 2012Q2

REPORT INFORMATION
  Report Type: 
  Country: None (occurrence: None)
  Receive Date: 20120426
  Receipt Date: 20120418
  Transmission Date: 20120825
  Serious: Yes (Hospitalization)
  Sender: FDA-Public Use
  Company Number: US-UCBSA-055708

PATIENT
  Age: 6 Year
  Sex: Female

DRUGS (9)
  1. VALPROIC ACID [Concomitant]
     Indication: EPILEPSY
     Route: 048
  2. CLONIDINE [Concomitant]
     Indication: ABNORMAL BEHAVIOUR
     Dosage: 1/4 TABLET
     Route: 048
     Dates: start: 20120403
  3. CLONAZEPAM [Concomitant]
     Indication: EPILEPSY
     Route: 048
  4. DIASTAT [Concomitant]
     Indication: CONVULSION
     Dosage: SUPPOSITORY, PRN FOR SEIZURES GREATER THAN 3 MINUTES
     Route: 054
  5. RISPERDAL [Concomitant]
     Indication: AGGRESSION
     Route: 048
  6. LACOSAMIDE [Suspect]
     Dosage: 8 M/S
     Route: 048
     Dates: start: 20110617, end: 20110726
  7. LACOSAMIDE [Suspect]
     Dosage: 14 M/S
     Route: 048
     Dates: start: 20120403
  8. LACOSAMIDE [Suspect]
     Dosage: 13 M/S
     Route: 048
     Dates: start: 20110727, end: 20120402
  9. LAMICTAL [Concomitant]
     Indication: EPILEPSY
     Route: 048

REACTIONS (1)
  - CONVULSION [None]
